FAERS Safety Report 10975980 (Version 1)
Quarter: 2015Q1

REPORT INFORMATION
  Report Type: Spontaneous
  Country: US (occurrence: None)
  Receive Date: 20150226
  Receipt Date: 20150226
  Transmission Date: 20150721
  Serious: No
  Sender: FDA-Public Use
  Company Number: TPA2014A04212

PATIENT
  Age: 42 Year
  Sex: Male

DRUGS (6)
  1. TOPROL XL [Concomitant]
     Active Substance: METOPROLOL SUCCINATE
  2. LOTREL (AMLODIPINE, BENAZEPRIL HYDROCHLORIDE) [Concomitant]
  3. HUMIRA [Concomitant]
     Active Substance: ADALIMUMAB
  4. PREDNISONE. [Concomitant]
     Active Substance: PREDNISONE
  5. COLCHICINE. [Concomitant]
     Active Substance: COLCHICINE
  6. ULORIC [Suspect]
     Active Substance: FEBUXOSTAT
     Indication: GOUT
     Route: 048
     Dates: start: 20100629, end: 20100720

REACTIONS (1)
  - Oedema peripheral [None]

NARRATIVE: CASE EVENT DATE: 20100701
